FAERS Safety Report 25234474 (Version 3)
Quarter: 2025Q2

REPORT INFORMATION
  Report Type: Other
  Country: US (occurrence: US)
  Receive Date: 20250424
  Receipt Date: 20250529
  Transmission Date: 20250717
  Serious: Yes (Hospitalization)
  Sender: APOTEX
  Company Number: US-APOTEX-2025AP005037

PATIENT
  Sex: Male

DRUGS (1)
  1. DESMOPRESSIN ACETATE [Suspect]
     Active Substance: DESMOPRESSIN ACETATE
     Indication: Diabetes insipidus
     Dosage: 2 DOSAGE FORM, QD (2 SPRAYS IN A DAY (11:00 AM AND 11:00 PM))
     Route: 065

REACTIONS (5)
  - Accidental overdose [Unknown]
  - Product container issue [Unknown]
  - Product leakage [Unknown]
  - Accidental exposure to product [Unknown]
  - Exposure via skin contact [Recovered/Resolved]

NARRATIVE: CASE EVENT DATE: 20250324
